FAERS Safety Report 14898307 (Version 2)
Quarter: 2018Q2

REPORT INFORMATION
  Report Type: Spontaneous
  Country: US (occurrence: US)
  Receive Date: 20180515
  Receipt Date: 20180517
  Transmission Date: 20180711
  Serious: No
  Sender: FDA-Public Use
  Company Number: US-SA-2018SA106059

PATIENT
  Age: 76 Year
  Sex: Female

DRUGS (6)
  1. TOUJEO [Suspect]
     Active Substance: INSULIN GLARGINE
     Indication: TYPE 2 DIABETES MELLITUS
     Dosage: DOSE:32 UNIT(S)
     Route: 051
  2. TOUJEO [Suspect]
     Active Substance: INSULIN GLARGINE
     Indication: TYPE 2 DIABETES MELLITUS
     Dosage: 10 UNITS LAST NIGHT DOSE:10 UNIT(S)
     Route: 051
  3. TOUJEO [Suspect]
     Active Substance: INSULIN GLARGINE
     Indication: TYPE 2 DIABETES MELLITUS
     Dosage: DOSE:35 UNIT(S)
     Route: 051
  4. LANTUS [Concomitant]
     Active Substance: INSULIN GLARGINE
     Dosage: DOSE:25 UNIT(S)
     Route: 065
  5. SOLOSTAR [Suspect]
     Active Substance: DEVICE
  6. TOUJEO [Suspect]
     Active Substance: INSULIN GLARGINE
     Indication: TYPE 2 DIABETES MELLITUS
     Dosage: DOSE:25 UNIT(S)
     Route: 051

REACTIONS (6)
  - Condition aggravated [Unknown]
  - Tremor [Unknown]
  - Product use issue [Unknown]
  - Blood glucose decreased [Unknown]
  - Hyperhidrosis [Unknown]
  - Gait disturbance [Unknown]
